FAERS Safety Report 7517168-0 (Version None)
Quarter: 2011Q2

REPORT INFORMATION
  Report Type: 
  Country: None (occurrence: None)
  Receive Date: 20110601
  Receipt Date: 20110530
  Transmission Date: 20111010
  Serious: Yes (Other)
  Sender: FDA-Public Use
  Company Number: AU-PFIZER INC-2011117571

PATIENT
  Age: 28 Year
  Sex: Female

DRUGS (6)
  1. INDERAL [Concomitant]
     Indication: MIGRAINE PROPHYLAXIS
  2. ZIPRASIDONE HCL [Suspect]
     Indication: ANXIETY
     Dosage: 60 MG, 2X/DAY
     Dates: end: 20110526
  3. VALIUM [Concomitant]
     Dosage: TWO WEEKS ON, TWO WEEKS OFF
  4. MIRTAZAPINE [Concomitant]
     Dosage: 30 MG, UNK
  5. PANADEINE FORTE [Concomitant]
     Dosage: AS NEEDED
  6. MERSYNDOL [Concomitant]
     Dosage: AS NEEDED

REACTIONS (8)
  - PANIC ATTACK [None]
  - BIPOLAR DISORDER [None]
  - AGITATION [None]
  - LACRIMATION INCREASED [None]
  - DEPRESSION [None]
  - FEELING HOT [None]
  - INSOMNIA [None]
  - PARAESTHESIA [None]
